FAERS Safety Report 11950871 (Version 1)
Quarter: 2016Q1

REPORT INFORMATION
  Report Type: Spontaneous
  Country: US (occurrence: None)
  Receive Date: 20160122
  Receipt Date: 20160122
  Transmission Date: 20160526
  Serious: No
  Sender: FDA-Public Use
  Company Number: None

PATIENT

DRUGS (2)
  1. OXYMORPHONE HCL OXYMORPHONE [Suspect]
     Active Substance: OXYMORPHONE
     Route: 048
  2. METHADONE HCL METHADONE HYDROCHLORIDE [Suspect]
     Active Substance: METHADONE HYDROCHLORIDE
     Route: 048

REACTIONS (2)
  - Drug dispensing error [None]
  - Product packaging confusion [None]
